FAERS Safety Report 7618851-9 (Version None)
Quarter: 2011Q3

REPORT INFORMATION
  Report Type: 
  Country: None (occurrence: None)
  Receive Date: 20110718
  Receipt Date: 20110707
  Transmission Date: 20111222
  Serious: Yes (Other)
  Sender: FDA-Public Use
  Company Number: CA-BAYER-2011-058946

PATIENT
  Age: 56 Year
  Sex: Male
  Weight: 90.703 kg

DRUGS (3)
  1. AVELOX [Suspect]
     Dosage: 400 MG, QD
     Route: 065
  2. NEXIUM [Concomitant]
     Route: 065
  3. APO-NAPRO-NA [Concomitant]
     Route: 065

REACTIONS (9)
  - ABDOMINAL RIGIDITY [None]
  - CONSTIPATION [None]
  - HYPERHIDROSIS [None]
  - PARALYSIS [None]
  - MUSCLE CONTRACTIONS INVOLUNTARY [None]
  - MUSCULAR WEAKNESS [None]
  - CONFUSIONAL STATE [None]
  - PAIN [None]
  - MUSCLE INJURY [None]
